FAERS Safety Report 4505821-2 (Version None)
Quarter: 2004Q4

REPORT INFORMATION
  Report Type: 
  Country: None (occurrence: None)
  Receive Date: 20041025
  Receipt Date: 20040428
  Transmission Date: 20050328
  Serious: Yes (Hospitalization)
  Sender: FDA-Public Use
  Company Number: US-JNJFOC-20040306330

PATIENT
  Age: 69 Year
  Sex: Male
  Weight: 76.2043 kg

DRUGS (1)
  1. REMICADE [Suspect]
     Indication: RHEUMATOID ARTHRITIS
     Dosage: 8 DOSE(S) INTRAVENOUS
     Route: 042
     Dates: start: 20031202

REACTIONS (1)
  - INFECTION [None]
